FAERS Safety Report 22984346 (Version 7)
Quarter: 2025Q3

REPORT INFORMATION
  Report Type: Spontaneous
  Country: US (occurrence: None)
  Receive Date: 20230926
  Receipt Date: 20250828
  Transmission Date: 20251021
  Serious: Yes (Other)
  Sender: ENCUBE ETHICALS PVT. LTD.
  Company Number: US-Encube-000478

PATIENT
  Age: 76 Year
  Sex: Female

DRUGS (18)
  1. DICLOFENAC SODIUM [Suspect]
     Active Substance: DICLOFENAC SODIUM
     Indication: Arthritis
     Dates: start: 20230825, end: 20230918
  2. ASPIRIN [Concomitant]
     Active Substance: ASPIRIN
     Indication: Hypertension
  3. NEURONTIN [Concomitant]
     Active Substance: GABAPENTIN
     Indication: Seizure
     Dosage: TWO CAPSULES FOUR TIMES A DAY,
  4. MYSOLINE [Concomitant]
     Active Substance: PRIMIDONE
     Indication: Seizure
  5. CALYPTOL [Concomitant]
     Indication: Seizure
  6. TRILEPTAL [Concomitant]
     Active Substance: OXCARBAZEPINE
  7. METOPROLOL TARTRATE [Concomitant]
     Active Substance: METOPROLOL TARTRATE
     Dosage: 25 MG HALF TABLET
  8. PRASUGREL [Concomitant]
     Active Substance: PRASUGREL
     Indication: Anticoagulant therapy
     Dosage: NO LONGER TAKING IT
  9. SYNTHROID [Concomitant]
     Active Substance: LEVOTHYROXINE SODIUM
     Indication: Thyroid disorder
  10. CALCIUM\VITAMIN D [Concomitant]
     Active Substance: CALCIUM\VITAMIN D
  11. STOOL SOFTENER (DOCUSATE) [Concomitant]
     Active Substance: DOCUSATE
  12. EPITOL [Concomitant]
     Active Substance: CARBAMAZEPINE
     Indication: Seizure
  13. RESTORE [Concomitant]
     Active Substance: GLYCERIN
     Indication: Eye disorder
  14. GARLIC PLUS [Concomitant]
  15. DRY EYE OMEGA BENEFITS [Concomitant]
     Indication: Eye disorder
  16. DICLOFENAC SODIUM [Suspect]
     Active Substance: DICLOFENAC SODIUM
     Indication: Product used for unknown indication
     Dates: start: 20230224, end: 20230614
  17. DICLOFENAC SODIUM [Suspect]
     Active Substance: DICLOFENAC SODIUM
     Indication: Musculoskeletal discomfort
     Dates: start: 20230825, end: 20230918
  18. NEURONTIN [Concomitant]
     Active Substance: GABAPENTIN
     Indication: Seizure
     Dosage: ONE-TAB CAPSULE AT BEDTIME

REACTIONS (9)
  - Chest pain [Not Recovered/Not Resolved]
  - Off label use [Unknown]
  - Pruritus [Recovered/Resolved]
  - Rash [Unknown]
  - Oedema [Not Recovered/Not Resolved]
  - Joint swelling [Not Recovered/Not Resolved]
  - Dysuria [Recovering/Resolving]
  - Epistaxis [Recovered/Resolved]
  - Seizure [Recovered/Resolved]

NARRATIVE: CASE EVENT DATE: 20230101
